FAERS Safety Report 21890971 (Version 1)
Quarter: 2023Q1

REPORT INFORMATION
  Report Type: Spontaneous
  Country: US (occurrence: None)
  Receive Date: 20230119
  Receipt Date: 20230119
  Transmission Date: 20230417
  Serious: Yes (Other)
  Sender: FDA-Public Use
  Company Number: None

PATIENT
  Age: 81 Year
  Sex: Female
  Weight: 70.31 kg

DRUGS (13)
  1. XARELTO [Suspect]
     Active Substance: RIVAROXABAN
     Indication: Atrial fibrillation
     Dosage: FREQUENCY : DAILY;?
     Route: 048
     Dates: start: 202207
  2. FAMOTIDINE [Concomitant]
     Active Substance: FAMOTIDINE
  3. MINOXIDIL [Concomitant]
     Active Substance: MINOXIDIL
  4. MECLIZINE [Concomitant]
     Active Substance: MECLIZINE HYDROCHLORIDE
  5. GLUCOSAMINE [Concomitant]
     Active Substance: GLUCOSAMINE
  6. CALCIUM CITRATE [Concomitant]
     Active Substance: CALCIUM CITRATE
  7. Vit. D3 [Concomitant]
  8. LYSINE [Concomitant]
     Active Substance: LYSINE
  9. FOLIC ACID [Concomitant]
     Active Substance: FOLIC ACID
  10. FISH OIL [Concomitant]
     Active Substance: FISH OIL
  11. VITAMIN C [Concomitant]
     Active Substance: ASCORBIC ACID
  12. B 6 [Concomitant]
  13. BILBERRY LUTEIN [Concomitant]

REACTIONS (2)
  - Alopecia [None]
  - Emotional distress [None]
